FAERS Safety Report 20681917 (Version 1)
Quarter: 2022Q2

REPORT INFORMATION
  Report Type: Report from Study
  Country: JP (occurrence: JP)
  Receive Date: 20220407
  Receipt Date: 20220407
  Transmission Date: 20220721
  Serious: Yes (Other)
  Sender: FDA-Public Use
  Company Number: JP-UCBJ-CD202202732UCBPHAPROD

PATIENT
  Age: 57 Year
  Sex: Male
  Weight: 66.2 kg

DRUGS (11)
  1. LACOSAMIDE [Suspect]
     Active Substance: LACOSAMIDE
     Indication: Simple partial seizures
     Dosage: 100 MILLIGRAM, ONCE DAILY (QD)
     Route: 041
     Dates: start: 20201103, end: 20201105
  2. LACOSAMIDE [Suspect]
     Active Substance: LACOSAMIDE
     Indication: Partial seizures with secondary generalisation
  3. VIMPAT [Suspect]
     Active Substance: LACOSAMIDE
     Indication: Simple partial seizures
     Dosage: 100 MILLIGRAM, DAILY
     Route: 048
     Dates: start: 20201106, end: 20201109
  4. VIMPAT [Suspect]
     Active Substance: LACOSAMIDE
     Indication: Partial seizures with secondary generalisation
     Dosage: 200 MILLIGRAM, DAILY
     Route: 048
     Dates: start: 20201110
  5. FOSPHENYTOIN SODIUM [Concomitant]
     Active Substance: FOSPHENYTOIN SODIUM
     Indication: Simple partial seizures
     Route: 065
     Dates: start: 20201029, end: 20201029
  6. FOSPHENYTOIN SODIUM [Concomitant]
     Active Substance: FOSPHENYTOIN SODIUM
     Indication: Partial seizures with secondary generalisation
     Route: 065
     Dates: start: 20201030, end: 20201104
  7. PHENYTOIN [Concomitant]
     Active Substance: PHENYTOIN
     Indication: Simple partial seizures
     Route: 048
     Dates: start: 20201105, end: 20201109
  8. PHENYTOIN [Concomitant]
     Active Substance: PHENYTOIN
     Indication: Partial seizures with secondary generalisation
  9. CALCIUM GLUCONATE\DEXTROSE\MAGNESIUM CHLORIDE\POTASSIUM CHLORIDE\SODIU [Concomitant]
     Active Substance: CALCIUM GLUCONATE\DEXTROSE\MAGNESIUM CHLORIDE\POTASSIUM CHLORIDE\SODIUM ACETATE\SODIUM CHLORIDE\TRIS
     Indication: Fluid replacement
     Route: 065
     Dates: start: 20201103, end: 20201111
  10. NICARDIPINE [Concomitant]
     Active Substance: NICARDIPINE
     Indication: Product used for unknown indication
     Route: 065
     Dates: start: 20201031, end: 20201105
  11. PIPERACILLIN SODIUM\TAZOBACTAM SODIUM [Concomitant]
     Active Substance: PIPERACILLIN SODIUM\TAZOBACTAM SODIUM
     Indication: Urinary tract infection
     Route: 065
     Dates: start: 20201102, end: 20201109

REACTIONS (4)
  - Subdural haematoma [Unknown]
  - Platelet count increased [Recovered/Resolved]
  - White blood cell count increased [Recovered/Resolved]
  - Off label use [Unknown]

NARRATIVE: CASE EVENT DATE: 20201103
